FAERS Safety Report 4591527-0 (Version None)
Quarter: 2005Q1

REPORT INFORMATION
  Report Type: 
  Country: None (occurrence: None)
  Receive Date: 20050222
  Receipt Date: 20050207
  Transmission Date: 20050727
  Serious: Yes (Other)
  Sender: FDA-Public Use
  Company Number: 2005026763

PATIENT
  Age: 12 Year

DRUGS (1)
  1. ZELDOX (CAPSULES) (ZIPRASIDONE) [Suspect]
     Indication: ILL-DEFINED DISORDER
     Dosage: 120 MG (2 IN 1 D),ORAL
     Route: 048

REACTIONS (1)
  - NEUROLEPTIC MALIGNANT SYNDROME [None]
